FAERS Safety Report 4323424-X (Version None)
Quarter: 2004Q1

REPORT INFORMATION
  Report Type: 
  Country: None (occurrence: None)
  Receive Date: 20040325
  Receipt Date: 20040317
  Transmission Date: 20041129
  Serious: Yes (Other)
  Sender: FDA-Public Use
  Company Number: WAES 0403USA01684

PATIENT
  Age: 71 Year
  Sex: Male

DRUGS (7)
  1. PEPCID [Suspect]
     Route: 048
     Dates: start: 20031008, end: 20031216
  2. PEPCID [Suspect]
     Route: 048
     Dates: start: 20030325, end: 20030329
  3. LOXOPROFEN SODIUM [Concomitant]
     Route: 048
     Dates: start: 20030325
  4. ADALAT [Concomitant]
     Route: 048
     Dates: start: 20040113
  5. PREDONINE [Concomitant]
     Route: 048
     Dates: start: 20030405
  6. MUCOSTA [Concomitant]
     Route: 048
     Dates: start: 20030325
  7. VITAMIN B COMPLEX [Concomitant]
     Route: 048
     Dates: start: 20030325, end: 20030430

REACTIONS (2)
  - ARTHRALGIA [None]
  - BLOOD CREATINE PHOSPHOKINASE INCREASED [None]
